FAERS Safety Report 10083399 (Version 1)
Quarter: 2014Q2

REPORT INFORMATION
  Report Type: Spontaneous
  Country: US (occurrence: None)
  Receive Date: 20140416
  Receipt Date: 20140416
  Transmission Date: 20141212
  Serious: Yes (Life-Threatening, Other)
  Sender: FDA-Public Use
  Company Number: None

PATIENT
  Age: 58 Year
  Sex: Male
  Weight: 90.72 kg

DRUGS (2)
  1. INSULIN [Suspect]
  2. PARADIGM INSULIN PUMP [Suspect]

REACTIONS (3)
  - Loss of consciousness [None]
  - Overdose [None]
  - Device deployment issue [None]
